FAERS Safety Report 23523832 (Version 3)
Quarter: 2024Q2

REPORT INFORMATION
  Report Type: Report from Study
  Country: CA (occurrence: CA)
  Receive Date: 20240214
  Receipt Date: 20240526
  Transmission Date: 20240716
  Serious: Yes (Hospitalization)
  Sender: FDA-Public Use
  Company Number: CA-ABBVIE-5631527

PATIENT
  Age: 64 Year
  Sex: Female

DRUGS (3)
  1. RINVOQ [Suspect]
     Active Substance: UPADACITINIB
     Indication: Ankylosing spondylitis
     Route: 048
     Dates: start: 20230208, end: 2024
  2. RINVOQ [Suspect]
     Active Substance: UPADACITINIB
     Indication: Ankylosing spondylitis
     Dosage: LAST ADMIN DATE: 2024
     Route: 048
     Dates: start: 202402
  3. RINVOQ [Suspect]
     Active Substance: UPADACITINIB
     Indication: Ankylosing spondylitis
     Route: 048
     Dates: start: 2024

REACTIONS (9)
  - Hip fracture [Recovering/Resolving]
  - Back pain [Unknown]
  - Fall [Unknown]
  - Intervertebral disc degeneration [Unknown]
  - Therapeutic product effect incomplete [Unknown]
  - Impaired healing [Unknown]
  - Muscle strain [Unknown]
  - Joint swelling [Unknown]
  - Arthritis infective [Unknown]

NARRATIVE: CASE EVENT DATE: 20240101
